FAERS Safety Report 6807787-9 (Version None)
Quarter: 2010Q2

REPORT INFORMATION
  Report Type: 
  Country: None (occurrence: None)
  Receive Date: 20100628
  Receipt Date: 20100628
  Transmission Date: 20101027
  Serious: No
  Sender: FDA-Public Use
  Company Number: None

PATIENT
  Sex: Female
  Weight: 81.1939 kg

DRUGS (1)
  1. LEVOTHYROXINE SODIUM [Suspect]
     Dosage: 125 MCG 1D
     Dates: start: 20060101

REACTIONS (2)
  - THYROXINE FREE DECREASED [None]
  - THYROXINE FREE INCREASED [None]
